FAERS Safety Report 10012974 (Version 1)
Quarter: 2014Q1

REPORT INFORMATION
  Report Type: Report from Study
  Country: CA (occurrence: CA)
  Receive Date: 20140314
  Receipt Date: 20140314
  Transmission Date: 20141002
  Serious: Yes (Hospitalization, Other)
  Sender: FDA-Public Use
  Company Number: CA-ABBVIE-14P-028-1210194-00

PATIENT
  Age: 53 Year
  Sex: Male

DRUGS (1)
  1. HUMIRA [Suspect]
     Indication: RHEUMATOID ARTHRITIS
     Route: 058
     Dates: start: 20120828, end: 20140219

REACTIONS (8)
  - Inguinal hernia [Unknown]
  - Post procedural complication [Not Recovered/Not Resolved]
  - Haematoma [Not Recovered/Not Resolved]
  - Testicular mass [Not Recovered/Not Resolved]
  - Lymphadenopathy [Not Recovered/Not Resolved]
  - Testicular pain [Not Recovered/Not Resolved]
  - Groin pain [Not Recovered/Not Resolved]
  - Drug dose omission [Unknown]
